FAERS Safety Report 6171562-1 (Version None)
Quarter: 2009Q2

REPORT INFORMATION
  Report Type: 
  Country: None (occurrence: None)
  Receive Date: 20090429
  Receipt Date: 20090422
  Transmission Date: 20091009
  Serious: Yes (Other)
  Sender: FDA-Public Use
  Company Number: CA-JNJFOC-20090405841

PATIENT
  Sex: Male
  Weight: 78.93 kg

DRUGS (9)
  1. REMICADE [Suspect]
     Route: 042
  2. REMICADE [Suspect]
     Route: 042
  3. REMICADE [Suspect]
     Route: 042
  4. REMICADE [Suspect]
     Route: 042
  5. REMICADE [Suspect]
     Route: 042
  6. REMICADE [Suspect]
     Route: 042
  7. REMICADE [Suspect]
     Indication: CROHN'S DISEASE
     Route: 042
  8. BENADRYL [Concomitant]
     Indication: PREMEDICATION
     Route: 048
  9. HYDROCORTISONE [Concomitant]
     Indication: PREMEDICATION
     Route: 042

REACTIONS (1)
  - ILEECTOMY [None]
